FAERS Safety Report 20831996 (Version 1)
Quarter: 2022Q2

REPORT INFORMATION
  Report Type: Spontaneous
  Country: DE (occurrence: DE)
  Receive Date: 20220516
  Receipt Date: 20220516
  Transmission Date: 20220721
  Serious: Yes (Other)
  Sender: FDA-Public Use
  Company Number: DE-TORRENT-00022404

PATIENT
  Age: 37 Year
  Sex: Male
  Weight: 85 kg

DRUGS (4)
  1. QUETIAPINE [Suspect]
     Active Substance: QUETIAPINE
     Indication: Asthenia
     Dosage: 400 MILLIGRAM, ONCE A DAY(TWICE DAILY)
     Route: 065
     Dates: start: 20210114, end: 20211215
  2. QUETIAPINE [Suspect]
     Active Substance: QUETIAPINE
     Indication: Depression
  3. VENLAFAXINE [Suspect]
     Active Substance: VENLAFAXINE HYDROCHLORIDE
     Indication: Asthenia
     Dosage: 225 MILLIGRAM(150MG IN THE MORNING+75MG AT NOONTIME)
     Route: 065
  4. BEZAFIBRATE [Concomitant]
     Active Substance: BEZAFIBRATE
     Indication: Blood triglycerides increased
     Dosage: 400 MILLIGRAM, ONCE A DAY(TWICE DAILY)
     Route: 065

REACTIONS (5)
  - Mental impairment [Unknown]
  - Loss of consciousness [Unknown]
  - Physical disability [Unknown]
  - Insomnia [Recovering/Resolving]
  - Vertigo [Unknown]
